FAERS Safety Report 6811120-6 (Version None)
Quarter: 2010Q2

REPORT INFORMATION
  Report Type: 
  Country: None (occurrence: None)
  Receive Date: 20100630
  Receipt Date: 20100315
  Transmission Date: 20101027
  Serious: No
  Sender: FDA-Public Use
  Company Number: US-PFIZER INC-2009156797

PATIENT
  Sex: Female
  Weight: 76.6 kg

DRUGS (3)
  1. ESTRING [Suspect]
     Indication: MENOPAUSE
     Dosage: 2 MG, UNK
     Dates: start: 20080501
  2. VAGIFEM [Suspect]
     Indication: MENOPAUSE
     Dates: start: 20081215, end: 20090108
  3. SUMATRIPTAN SUCCINATE (IMITREX) [Concomitant]
     Indication: MIGRAINE

REACTIONS (5)
  - BONE PAIN [None]
  - DRUG INEFFECTIVE [None]
  - MIGRAINE [None]
  - VULVOVAGINAL DISCOMFORT [None]
  - VULVOVAGINAL MYCOTIC INFECTION [None]
